FAERS Safety Report 4333737-3 (Version None)
Quarter: 2004Q2

REPORT INFORMATION
  Report Type: 
  Country: None (occurrence: None)
  Receive Date: 20040402
  Receipt Date: 20040225
  Transmission Date: 20050107
  Serious: Yes (Other)
  Sender: FDA-Public Use
  Company Number: US-JNJFOC-20040205395

PATIENT
  Age: 53 Year
  Sex: Female

DRUGS (7)
  1. DURAGESIC [Suspect]
     Dosage: SEE IMAGE
     Route: 062
     Dates: start: 20040201, end: 20040219
  2. DURAGESIC [Suspect]
     Dosage: SEE IMAGE
     Route: 062
     Dates: start: 20040219, end: 20040220
  3. DURAGESIC [Suspect]
     Dosage: SEE IMAGE
     Route: 062
     Dates: start: 20040320, end: 20040321
  4. DURAGESIC [Suspect]
     Dosage: SEE IMAGE
     Route: 062
     Dates: start: 20040322, end: 20040323
  5. SYNTHROID [Concomitant]
  6. PRILOSEC [Concomitant]
  7. COLACE (DOCUSATE SODIUM) [Concomitant]

REACTIONS (13)
  - ANXIETY [None]
  - CONSTIPATION [None]
  - DEPRESSION [None]
  - EUPHORIC MOOD [None]
  - FEELING DRUNK [None]
  - INSOMNIA [None]
  - MEDICATION ERROR [None]
  - NAUSEA [None]
  - PRURITUS [None]
  - RECTAL HAEMORRHAGE [None]
  - SEDATION [None]
  - SUICIDAL IDEATION [None]
  - VOMITING [None]
